FAERS Safety Report 18378439 (Version 1)
Quarter: 2020Q4

REPORT INFORMATION
  Report Type: Spontaneous
  Country: US (occurrence: US)
  Receive Date: 20201013
  Receipt Date: 20201013
  Transmission Date: 20210114
  Serious: Yes (Other)
  Sender: FDA-Public Use
  Company Number: US-ASTRAZENECA-2020SF32229

PATIENT

DRUGS (1)
  1. PRILOSEC OTC [Suspect]
     Active Substance: OMEPRAZOLE MAGNESIUM
     Indication: GASTROINTESTINAL DISORDER
     Dosage: UNK
     Route: 048
     Dates: start: 201401, end: 201712

REACTIONS (6)
  - End stage renal disease [Unknown]
  - Rebound effect [Unknown]
  - Pain [Unknown]
  - Drug dependence [Unknown]
  - Hyperchlorhydria [Unknown]
  - Chronic kidney disease [Unknown]
